FAERS Safety Report 5042644-2 (Version None)
Quarter: 2006Q3

REPORT INFORMATION
  Report Type: 
  Country: None (occurrence: None)
  Receive Date: 20060705
  Receipt Date: 20060622
  Transmission Date: 20061208
  Serious: Yes (Death)
  Sender: FDA-Public Use
  Company Number: JP-SANOFI-SYNTHELABO-A01200604954

PATIENT
  Age: 77 Year
  Sex: Male
  Weight: 53 kg

DRUGS (4)
  1. SOLU-MEDROL [Concomitant]
     Route: 042
     Dates: start: 20060526
  2. FLUOROURACIL [Concomitant]
     Dosage: 500 MG/BODY=337.8 MG/M2 IN BOLUS THEN 3000 MG/BODY=2027 MG/M2 AS INFUSION
     Route: 042
     Dates: start: 20060522, end: 20060523
  3. ISOVORIN [Concomitant]
     Dosage: 250 MG/BODY=168.9 MG/M2
     Route: 042
     Dates: start: 20060522, end: 20060523
  4. OXALIPLATIN [Suspect]
     Indication: RECTAL CANCER
     Dosage: 100 MG/BODY=67.6 MG/M2
     Route: 042
     Dates: start: 20060522, end: 20060522

REACTIONS (1)
  - INTERSTITIAL LUNG DISEASE [None]
